FAERS Safety Report 17163382 (Version 6)
Quarter: 2020Q1

REPORT INFORMATION
  Report Type: Report from Study
  Country: US (occurrence: US)
  Receive Date: 20191217
  Receipt Date: 20200218
  Transmission Date: 20200409
  Serious: Yes (Congenital Anomaly, Other)
  Sender: FDA-Public Use
  Company Number: US-VIIV HEALTHCARE LIMITED-US2019GSK229545

PATIENT
  Sex: Male

DRUGS (3)
  1. TRUVADA [Suspect]
     Active Substance: EMTRICITABINE\TENOFOVIR DISOPROXIL FUMARATE
     Indication: HIV INFECTION
     Dosage: 1 DF,TAB PER CAPS
     Route: 064
     Dates: start: 20190614
  2. DOLUTEGRAVIR [Suspect]
     Active Substance: DOLUTEGRAVIR
     Indication: HIV INFECTION
     Dosage: 50 MG, QD
     Route: 064
     Dates: start: 20190614
  3. GENVOYA [Suspect]
     Active Substance: COBICISTAT\ELVITEGRAVIR\EMTRICITABINE\TENOFOVIR ALAFENAMIDE FUMARATE
     Indication: HIV INFECTION
     Dosage: 1 DF,TAB PER CAPS
     Route: 064

REACTIONS (8)
  - Pulmonary valve incompetence [Unknown]
  - Foetal exposure during pregnancy [Unknown]
  - Congenital pulmonary valve disorder [Unknown]
  - Hypoxic-ischaemic encephalopathy [Unknown]
  - Atrial septal defect [Unknown]
  - Pulmonary artery stenosis congenital [Unknown]
  - Pulmonary valve stenosis congenital [Unknown]
  - Pulmonary vascular resistance abnormality [Unknown]
